FAERS Safety Report 19613122 (Version 1)
Quarter: 2021Q3

REPORT INFORMATION
  Report Type: Spontaneous
  Country: CN (occurrence: CN)
  Receive Date: 20210727
  Receipt Date: 20210727
  Transmission Date: 20211014
  Serious: Yes (Other)
  Sender: FDA-Public Use
  Company Number: CN-BAUSCH-BL-2021-025097

PATIENT
  Age: 43 Year
  Sex: Female

DRUGS (4)
  1. CYCLOPHOSPHAMIDE. [Suspect]
     Active Substance: CYCLOPHOSPHAMIDE
     Indication: PRECURSOR T-LYMPHOBLASTIC LEUKAEMIA ACUTE
     Dosage: SIX DOSES OVER 3 HOURS EVERY 12 HOURS ON DAYS 1 THROUGH 3
     Route: 042
  2. DOXORUBICIN [Suspect]
     Active Substance: DOXORUBICIN
     Indication: PRECURSOR T-LYMPHOBLASTIC LEUKAEMIA ACUTE
     Dosage: ON DAY 4
     Route: 042
  3. VINCRISTINE [Suspect]
     Active Substance: VINCRISTINE
     Indication: PRECURSOR T-LYMPHOBLASTIC LEUKAEMIA ACUTE
     Dosage: ON DAYS 4 AND 11
     Route: 042
  4. DEXAMETHASONE. [Suspect]
     Active Substance: DEXAMETHASONE
     Indication: PRECURSOR T-LYMPHOBLASTIC LEUKAEMIA ACUTE
     Dosage: ON DAYS 1 THROUGH 4 AND 11 THROUGH 14
     Route: 065

REACTIONS (1)
  - Febrile neutropenia [Unknown]
